FAERS Safety Report 4269731-0 (Version None)
Quarter: 2004Q1

REPORT INFORMATION
  Report Type: 
  Country: None (occurrence: None)
  Receive Date: 20040106
  Receipt Date: 20031230
  Transmission Date: 20041129
  Serious: Yes (Death)
  Sender: FDA-Public Use
  Company Number: 2003SA000182

PATIENT
  Age: 4 Year
  Sex: Female
  Weight: 17.8 kg

DRUGS (3)
  1. THYMOGLOBULINE (RABBIT ANIT THYMOCYTE GLOBULIN) [Suspect]
     Indication: BONE MARROW TRANSPLANT
     Dosage: 45 MG; DAILY; INTRAVENOUS
     Route: 042
     Dates: start: 20031116, end: 20031119
  2. ANTIBIOTICS [Concomitant]
  3. ANTIFUNGAL [Concomitant]

REACTIONS (8)
  - ABDOMINAL PAIN [None]
  - AGRANULOCYTOSIS [None]
  - INFECTION [None]
  - MULTI-ORGAN FAILURE [None]
  - PYREXIA [None]
  - SHOCK [None]
  - STEM CELL TRANSPLANT [None]
  - SYSTEMIC INFLAMMATORY RESPONSE SYNDROME [None]
